FAERS Safety Report 4379208-X (Version None)
Quarter: 2004Q2

REPORT INFORMATION
  Report Type: 
  Country: None (occurrence: None)
  Receive Date: 20040614
  Receipt Date: 20040506
  Transmission Date: 20050107
  Serious: Yes (Other)
  Sender: FDA-Public Use
  Company Number: 2004023153

PATIENT
  Age: 89 Year
  Sex: Male

DRUGS (2)
  1. ATARAX [Suspect]
     Indication: HYPERSENSITIVITY
     Dosage: SEE IMAGE
     Dates: start: 20040301
  2. HYDROXYZINE HCL [Suspect]
     Indication: HYPERSENSITIVITY

REACTIONS (12)
  - ALLERGY TEST POSITIVE [None]
  - BENIGN PROSTATIC HYPERPLASIA [None]
  - CHOKING [None]
  - COUGH [None]
  - DECREASED APPETITE [None]
  - DRUG EFFECT DECREASED [None]
  - DYSPHAGIA [None]
  - DYSPNOEA [None]
  - PHARMACEUTICAL PRODUCT COMPLAINT [None]
  - PROSTATIC OPERATION [None]
  - RHINORRHOEA [None]
  - WEIGHT DECREASED [None]
